FAERS Safety Report 7303220-1 (Version None)
Quarter: 2011Q1

REPORT INFORMATION
  Report Type: 
  Country: None (occurrence: None)
  Receive Date: 20110221
  Receipt Date: 20110209
  Transmission Date: 20110831
  Serious: No
  Sender: FDA-Public Use
  Company Number: US-BIOGENIDEC-2011BI005808

PATIENT
  Sex: Male

DRUGS (1)
  1. TYSABRI [Suspect]
     Indication: MULTIPLE SCLEROSIS
     Route: 042
     Dates: start: 20100114, end: 20101202

REACTIONS (7)
  - SINUSITIS [None]
  - EAR INFECTION [None]
  - RESPIRATORY TRACT CONGESTION [None]
  - MUSCULAR WEAKNESS [None]
  - PERIORBITAL CELLULITIS [None]
  - EYE SWELLING [None]
  - BALANCE DISORDER [None]
